FAERS Safety Report 7893783-X (Version None)
Quarter: 2011Q4

REPORT INFORMATION
  Report Type: 
  Country: None (occurrence: None)
  Receive Date: 20111104
  Receipt Date: 20111025
  Transmission Date: 20120403
  Serious: Yes (Hospitalization)
  Sender: FDA-Public Use
  Company Number: JP-ROCHE-1008457

PATIENT
  Sex: Male

DRUGS (10)
  1. SENNOSIDE A+B [Concomitant]
  2. FERROUS SULFATE TAB [Concomitant]
  3. RANIBIZUMAB [Suspect]
     Indication: AGE-RELATED MACULAR DEGENERATION
     Route: 050
     Dates: start: 20110831
  4. EPINASTINE HYDROCHLORIDE [Concomitant]
     Dates: start: 20110801, end: 20110831
  5. MOXIFLOXACIN HYDROCHLORIDE [Concomitant]
     Dates: start: 20110801, end: 20110901
  6. MUCOSOLVAN [Concomitant]
  7. AMLODIPINE [Concomitant]
     Dates: start: 20110801, end: 20110831
  8. CLARITHROMYCIN [Concomitant]
     Dates: start: 20110801, end: 20110831
  9. AMLODIPINE [Concomitant]
  10. FAMOTIDINE [Concomitant]

REACTIONS (1)
  - CEREBRAL INFARCTION [None]
